FAERS Safety Report 11724675 (Version 1)
Quarter: 2015Q4

REPORT INFORMATION
  Report Type: Spontaneous
  Country: US (occurrence: US)
  Receive Date: 20151111
  Receipt Date: 20151111
  Transmission Date: 20160304
  Serious: No
  Sender: FDA-Public Use
  Company Number: US-UCBSA-2014019518

PATIENT
  Age: 22 Year
  Sex: Female
  Weight: 41.73 kg

DRUGS (4)
  1. VIMPAT [Suspect]
     Active Substance: LACOSAMIDE
     Indication: SEIZURE
     Dosage: 150 MG, 2X/DAY (BID)
     Route: 048
  2. LORAZEPAM. [Concomitant]
     Active Substance: LORAZEPAM
     Indication: SEIZURE
     Dosage: AS NEEDED (PRN), TAKE 1 TAB BY MOUTH NIGHTLY AS NEEDED.
     Route: 048
  3. DIAZEPAM. [Concomitant]
     Active Substance: DIAZEPAM
     Indication: SEIZURE
     Dosage: 2.5 MG, AS NEEDED (PRN), INSERT OR APPLY 2.5 MG RECTALLY ONCE AS NEEDED FOR SEIZURES FOR 1 DOSE.
     Route: 054
  4. CLONAZEPAM. [Concomitant]
     Active Substance: CLONAZEPAM
     Indication: PRODUCT USED FOR UNKNOWN INDICATION
     Dosage: DOSE: 1 MG TABLET, TAKE 1 TABLET BY MOUTH IN THE MORNING AND TAKE 2 TABLETS BY MOUTH IN BEDTIME.
     Route: 048

REACTIONS (4)
  - Gait disturbance [Unknown]
  - Confusional state [Unknown]
  - Psoriasis [Not Recovered/Not Resolved]
  - Seizure [Unknown]

NARRATIVE: CASE EVENT DATE: 201402
